FAERS Safety Report 5095610-5 (Version None)
Quarter: 2006Q3

REPORT INFORMATION
  Report Type: 
  Country: None (occurrence: None)
  Receive Date: 20060901
  Receipt Date: 20060727
  Transmission Date: 20061208
  Serious: Yes (Life-Threatening)
  Sender: FDA-Public Use
  Company Number: JP-MERCK-0608USA00349

PATIENT
  Age: 59 Year
  Sex: Female
  Weight: 67 kg

DRUGS (8)
  1. ARAVA [Suspect]
     Indication: RHEUMATOID ARTHRITIS
     Route: 048
     Dates: start: 20060517, end: 20060728
  2. ARAVA [Suspect]
     Route: 048
     Dates: start: 20030928, end: 20031010
  3. ARAVA [Suspect]
     Route: 048
     Dates: start: 20031011, end: 20040113
  4. ARAVA [Suspect]
     Route: 048
     Dates: start: 20040114, end: 20060516
  5. FOSAMAX [Suspect]
     Indication: OSTEOPOROSIS PROPHYLAXIS
     Route: 048
     Dates: start: 20050331, end: 20060728
  6. VOLTAREN [Concomitant]
     Indication: INFLAMMATION
     Route: 048
     Dates: start: 20020919
  7. BENET [Suspect]
     Indication: OSTEOPOROSIS PROPHYLAXIS
     Route: 048
     Dates: start: 20020509, end: 20050330
  8. ONEALFA [Concomitant]
     Indication: OSTEOPOROSIS PROPHYLAXIS
     Route: 048
     Dates: start: 20051205

REACTIONS (1)
  - UTERINE CANCER [None]
